FAERS Safety Report 16036149 (Version 1)
Quarter: 2019Q1

REPORT INFORMATION
  Report Type: Spontaneous
  Country: US (occurrence: US)
  Receive Date: 20190305
  Receipt Date: 20190305
  Transmission Date: 20190418
  Serious: No
  Sender: FDA-Public Use
  Company Number: US-ALLERGAN-1806522US

PATIENT
  Sex: Female

DRUGS (2)
  1. ESTRACE [Suspect]
     Active Substance: ESTRADIOL
     Indication: ATROPHIC VULVOVAGINITIS
  2. ESTRACE [Suspect]
     Active Substance: ESTRADIOL
     Indication: URINARY TRACT INFECTION
     Dosage: 1 G, 3 TIMES A WEEK
     Route: 067
     Dates: start: 20180201

REACTIONS (4)
  - Inappropriate schedule of product administration [Unknown]
  - Vaginal discharge [Recovered/Resolved]
  - Therapeutic response decreased [Unknown]
  - Product prescribing error [Unknown]
